FAERS Safety Report 12944837 (Version 2)
Quarter: 2016Q4

REPORT INFORMATION
  Report Type: Spontaneous
  Country: PT (occurrence: PT)
  Receive Date: 20161116
  Receipt Date: 20161130
  Transmission Date: 20170207
  Serious: Yes (Other)
  Sender: FDA-Public Use
  Company Number: PT-ROCHE-1854735

PATIENT
  Sex: Female

DRUGS (1)
  1. XOLAIR [Suspect]
     Active Substance: OMALIZUMAB
     Indication: PRODUCT USED FOR UNKNOWN INDICATION
     Dosage: UNK
     Route: 065
     Dates: start: 20161031

REACTIONS (5)
  - Pelvic fluid collection [Unknown]
  - Abdominal pain [Not Recovered/Not Resolved]
  - Pyrexia [Unknown]
  - Influenza like illness [Unknown]
  - Nausea [Unknown]

NARRATIVE: CASE EVENT DATE: 20161101
